FAERS Safety Report 8403372-6 (Version None)
Quarter: 2012Q2

REPORT INFORMATION
  Report Type: 
  Country: None (occurrence: None)
  Receive Date: 20120601
  Receipt Date: 20120530
  Transmission Date: 20120825
  Serious: No
  Sender: FDA-Public Use
  Company Number: US-PFIZER INC-2012130744

PATIENT
  Sex: Female
  Weight: 88 kg

DRUGS (3)
  1. BENICAR HCT [Concomitant]
     Indication: HYPERTENSION
     Dosage: UNK
  2. CELEBREX [Suspect]
     Indication: ARTHRITIS
     Dosage: 200 MG, 1X/DAY
     Route: 048
     Dates: start: 20110101, end: 20120526
  3. BYSTOLIC [Concomitant]
     Indication: HYPERTENSION
     Dosage: UNK

REACTIONS (1)
  - DRUG INEFFECTIVE [None]
